FAERS Safety Report 23066677 (Version 5)
Quarter: 2024Q1

REPORT INFORMATION
  Report Type: Report from Study
  Country: GB (occurrence: GB)
  Receive Date: 20231016
  Receipt Date: 20240202
  Transmission Date: 20240410
  Serious: Yes (Other)
  Sender: FDA-Public Use
  Company Number: GB-ABBVIE-5358472

PATIENT
  Age: 68 Year
  Sex: Male

DRUGS (31)
  1. CARBIDOPA\LEVODOPA [Suspect]
     Active Substance: CARBIDOPA\LEVODOPA
     Indication: Parkinson^s disease
     Dosage: 20MG/5MG, MD: 6.3ML CR: 1.0ML ED:0.3ML
     Route: 050
     Dates: start: 2023, end: 2023
  2. CARBIDOPA\LEVODOPA [Suspect]
     Active Substance: CARBIDOPA\LEVODOPA
     Dosage: MD: 6.3ML CR: 1.0ML ED:0.5ML
     Route: 050
     Dates: end: 2023
  3. CARBIDOPA\LEVODOPA [Suspect]
     Active Substance: CARBIDOPA\LEVODOPA
     Dosage: MD:6.4ML, CR: 1.1ML, ED: 0.7ML
     Route: 050
     Dates: start: 2023, end: 2023
  4. CARBIDOPA\LEVODOPA [Suspect]
     Active Substance: CARBIDOPA\LEVODOPA
     Dosage: 1.1MLS/HR MORNING DOSE 6.4MLS/HR EXTRA DOSE 0.3MLS 0830 TO 2200HRS
     Route: 050
     Dates: start: 2023, end: 2023
  5. CARBIDOPA\LEVODOPA [Suspect]
     Active Substance: CARBIDOPA\LEVODOPA
     Dosage: CR: 1.2MLS/HR
     Route: 050
     Dates: start: 2023, end: 2023
  6. CARBIDOPA\LEVODOPA [Suspect]
     Active Substance: CARBIDOPA\LEVODOPA
     Dosage: MD 6.4MLS CR 1.4MLS ED 0.7MLS
     Route: 050
  7. CARBIDOPA\LEVODOPA [Suspect]
     Active Substance: CARBIDOPA\LEVODOPA
     Dosage: LEVODOPA 20MGS / CARBIDOPA 5MG PER ML (DUODOPA) 1.9MLS/HR. MD 6.4MLS, ED 0.3MLS 0830 TO 2200HRS
     Route: 050
  8. CARBIDOPA\LEVODOPA [Suspect]
     Active Substance: CARBIDOPA\LEVODOPA
     Dosage: CONTINUOUS RATE: 1.9MLS EXTRA DOSE: 0.8MLS MORNING DOSE:6.4MLS
     Route: 050
     Dates: start: 202401
  9. ROPINIROLE [Suspect]
     Active Substance: ROPINIROLE
     Indication: Product used for unknown indication
     Route: 065
     Dates: start: 2023, end: 2023
  10. ROPINIROLE [Suspect]
     Active Substance: ROPINIROLE
     Indication: Product used for unknown indication
     Dosage: LAST ADMIN DATE 2023
     Route: 065
     Dates: start: 20230814
  11. ROPINIROLE [Suspect]
     Active Substance: ROPINIROLE
     Indication: Product used for unknown indication
     Dosage: XL
     Route: 065
     Dates: start: 20231009
  12. BENSERAZIDE HYDROCHLORIDE\LEVODOPA [Concomitant]
     Active Substance: BENSERAZIDE HYDROCHLORIDE\LEVODOPA
     Indication: Product used for unknown indication
     Dosage: 12.5/50MG X2
  13. BENSERAZIDE HYDROCHLORIDE\LEVODOPA [Concomitant]
     Active Substance: BENSERAZIDE HYDROCHLORIDE\LEVODOPA
     Indication: Product used for unknown indication
     Dosage: 12.5/50MG X2?FREQUENCY TEXT: OM
  14. BENSERAZIDE HYDROCHLORIDE\LEVODOPA [Concomitant]
     Active Substance: BENSERAZIDE HYDROCHLORIDE\LEVODOPA
     Indication: Product used for unknown indication
     Dosage: 12.5/50MG X2
  15. CHOLECALCIFEROL [Concomitant]
     Active Substance: CHOLECALCIFEROL
     Indication: Product used for unknown indication
  16. BENSERAZIDE HYDROCHLORIDE\LEVODOPA [Concomitant]
     Active Substance: BENSERAZIDE HYDROCHLORIDE\LEVODOPA
     Indication: Product used for unknown indication
     Dosage: 12.5/50MGS
  17. BENSERAZIDE HYDROCHLORIDE\LEVODOPA [Concomitant]
     Active Substance: BENSERAZIDE HYDROCHLORIDE\LEVODOPA
     Indication: Product used for unknown indication
     Dosage: AT 07:00HRS PLUS EXTRA ONE TABLET AS REQ?MR
  18. BENSERAZIDE HYDROCHLORIDE\LEVODOPA [Concomitant]
     Active Substance: BENSERAZIDE HYDROCHLORIDE\LEVODOPA
     Indication: Product used for unknown indication
     Dosage: 12.5/50MGS TWO TABLETS?OM?2 TAB AT 07:00HRS PLUS EXTRA 1 TAB PRN
  19. BENSERAZIDE HYDROCHLORIDE\LEVODOPA [Concomitant]
     Active Substance: BENSERAZIDE HYDROCHLORIDE\LEVODOPA
     Indication: Product used for unknown indication
     Dosage: 12.5/50MGS
  20. AMLODIPINE [Concomitant]
     Active Substance: AMLODIPINE BESYLATE
     Indication: Product used for unknown indication
  21. POLYETHYLENE GLYCOL 3350\POTASSIUM CHLORIDE\SODIUM BICARBONATE\SODIUM [Concomitant]
     Active Substance: POLYETHYLENE GLYCOL 3350\POTASSIUM CHLORIDE\SODIUM BICARBONATE\SODIUM CHLORIDE
     Indication: Product used for unknown indication
     Route: 065
  22. TADALAFIL [Concomitant]
     Active Substance: TADALAFIL
     Indication: Product used for unknown indication
  23. NAPROXEN [Concomitant]
     Active Substance: NAPROXEN
     Indication: Product used for unknown indication
  24. ACETAMINOPHEN [Concomitant]
     Active Substance: ACETAMINOPHEN
     Indication: Product used for unknown indication
  25. LANSOPRAZOLE [Concomitant]
     Active Substance: LANSOPRAZOLE
     Indication: Product used for unknown indication
  26. MIRTAZAPINE [Concomitant]
     Active Substance: MIRTAZAPINE
     Indication: Product used for unknown indication
  27. IBUPROFEN [Concomitant]
     Active Substance: IBUPROFEN
     Indication: Product used for unknown indication
  28. MIRABEGRON [Concomitant]
     Active Substance: MIRABEGRON
     Indication: Nocturia
     Dates: start: 2023
  29. CYANOCOBALAMIN [Concomitant]
     Active Substance: CYANOCOBALAMIN
     Indication: Product used for unknown indication
  30. NIACINAMIDE\PYRIDOXINE HYDROCHLORIDE\RIBOFLAVIN\THIAMINE HYDROCHLORIDE [Concomitant]
     Active Substance: NIACINAMIDE\PYRIDOXINE HYDROCHLORIDE\RIBOFLAVIN\THIAMINE HYDROCHLORIDE
     Indication: Product used for unknown indication
  31. SENNA [Concomitant]
     Active Substance: SENNA LEAF\SENNOSIDES\SENNOSIDES A AND B
     Indication: Constipation

REACTIONS (33)
  - Blood pressure abnormal [Unknown]
  - Anxiety [Unknown]
  - Device issue [Not Recovered/Not Resolved]
  - Mobility decreased [Unknown]
  - Asthenia [Unknown]
  - Parkinson^s disease [Not Recovered/Not Resolved]
  - Oedema peripheral [Recovering/Resolving]
  - Heart rate abnormal [Unknown]
  - Therapeutic product effect decreased [Unknown]
  - Tremor [Recovered/Resolved]
  - Device issue [Unknown]
  - Stoma site discharge [Recovered/Resolved]
  - Localised infection [Recovering/Resolving]
  - Stoma site erythema [Recovered/Resolved]
  - Freezing phenomenon [Not Recovered/Not Resolved]
  - Fall [Recovered/Resolved]
  - Blood pressure abnormal [Unknown]
  - Decreased appetite [Unknown]
  - Muscle rigidity [Recovered/Resolved]
  - Nocturia [Not Recovered/Not Resolved]
  - Bradykinesia [Unknown]
  - Formication [Unknown]
  - Sleep disorder [Unknown]
  - Food craving [Unknown]
  - Skin abrasion [Recovering/Resolving]
  - Apathy [Unknown]
  - Stoma site infection [Unknown]
  - Balance disorder [Unknown]
  - Constipation [Unknown]
  - Drug ineffective [Unknown]
  - Condition aggravated [Unknown]
  - Stoma site discharge [Not Recovered/Not Resolved]
  - Device breakage [Not Recovered/Not Resolved]

NARRATIVE: CASE EVENT DATE: 20230101
